FAERS Safety Report 6086595-3 (Version None)
Quarter: 2009Q1

REPORT INFORMATION
  Report Type: 
  Country: None (occurrence: None)
  Receive Date: 20090223
  Receipt Date: 20090210
  Transmission Date: 20090719
  Serious: Yes (Life-Threatening, Other)
  Sender: FDA-Public Use
  Company Number: JP-PFIZER INC-2009152341

PATIENT

DRUGS (14)
  1. UNASYN [Suspect]
     Indication: PNEUMONIA
     Dosage: 3 G, 2X/DAY
     Route: 042
     Dates: start: 20081222, end: 20081228
  2. CRAVIT [Concomitant]
     Indication: PNEUMONIA
     Dosage: 100 MG, 2X/DAY
     Route: 048
     Dates: start: 20081229, end: 20090102
  3. ISCOTIN [Concomitant]
     Dosage: UNK
     Route: 048
     Dates: end: 20081231
  4. EBUTOL [Concomitant]
     Route: 048
  5. RIFAMPICIN [Concomitant]
     Route: 048
  6. URSO 250 [Concomitant]
     Dosage: UNK
     Route: 048
     Dates: end: 20090102
  7. MONILAC [Concomitant]
     Dosage: UNK
     Route: 048
     Dates: end: 20090102
  8. MEILAX [Concomitant]
     Dosage: UNK
     Route: 048
     Dates: end: 20090102
  9. LUVOX [Concomitant]
     Dosage: UNK
     Route: 048
     Dates: end: 20090102
  10. LASIX [Concomitant]
     Dosage: UNK
     Route: 048
     Dates: end: 20090102
  11. LAFUTIDINE [Concomitant]
     Dosage: UNK
     Route: 048
     Dates: end: 20090102
  12. GASMOTIN [Concomitant]
     Dosage: UNK
     Route: 048
     Dates: end: 20090102
  13. BIOFERMIN R [Concomitant]
     Dosage: UNK
     Route: 048
     Dates: end: 20090102
  14. MYSLEE [Concomitant]
     Dosage: UNK
     Route: 048
     Dates: end: 20090102

REACTIONS (1)
  - INTERSTITIAL LUNG DISEASE [None]
